FAERS Safety Report 4553472-6 (Version None)
Quarter: 2005Q1

REPORT INFORMATION
  Report Type: 
  Country: None (occurrence: None)
  Receive Date: 20050112
  Receipt Date: 20041227
  Transmission Date: 20050727
  Serious: Yes (Hospitalization)
  Sender: FDA-Public Use
  Company Number: DSA_25590_2005

PATIENT
  Age: 63 Year
  Sex: Male

DRUGS (9)
  1. ENALAPRIL MALEATE [Suspect]
     Indication: CARDIAC FAILURE
     Dosage: 20 MG QD PO
     Route: 048
     Dates: end: 20041007
  2. ASPIRIN [Concomitant]
  3. TENORMIN [Concomitant]
  4. NEXIUM [Concomitant]
  5. PLENDIL [Concomitant]
  6. FOLACIN [Concomitant]
  7. NITROMEX [Concomitant]
  8. SUSCARD [Concomitant]
  9. ZOCORD [Concomitant]

REACTIONS (6)
  - ANURIA [None]
  - BLOOD PRESSURE SYSTOLIC INCREASED [None]
  - DEHYDRATION [None]
  - DIARRHOEA [None]
  - POLYURIA [None]
  - RENAL FAILURE [None]
